FAERS Safety Report 5048566-5 (Version None)
Quarter: 2006Q2

REPORT INFORMATION
  Report Type: 
  Country: None (occurrence: None)
  Receive Date: 20060601
  Receipt Date: 20060310
  Transmission Date: 20061013
  Serious: No
  Sender: FDA-Public Use
  Company Number: US200603002824

PATIENT
  Age: 56 Year
  Sex: Female

DRUGS (2)
  1. CYMBALTA [Suspect]
     Indication: FIBROMYALGIA
     Dosage: 60 MG
     Dates: start: 20060119
  2. LEVOTHYROXINE SODIUM [Concomitant]

REACTIONS (3)
  - HEADACHE [None]
  - HYPERACUSIS [None]
  - MIDDLE INSOMNIA [None]
